FAERS Safety Report 5171035-9 (Version None)
Quarter: 2006Q4

REPORT INFORMATION
  Report Type: 
  Country: None (occurrence: None)
  Receive Date: 20061213
  Receipt Date: 20050607
  Transmission Date: 20070319
  Serious: Yes (Hospitalization, Other)
  Sender: FDA-Public Use
  Company Number: CA-AVENTIS-200515355GDDC

PATIENT
  Age: 70 Year
  Sex: Male
  Weight: 68.1 kg

DRUGS (14)
  1. LANTUS [Suspect]
     Indication: DIABETES MELLITUS
     Route: 058
     Dates: start: 20020208, end: 20050906
  2. ALTACE [Concomitant]
     Indication: HYPERTENSION
     Route: 048
     Dates: start: 20050201
  3. VIAGRA                             /01367501/ [Concomitant]
     Indication: ERECTILE DYSFUNCTION
     Route: 048
     Dates: start: 19960101
  4. HYTRIN [Concomitant]
     Indication: BENIGN PROSTATIC HYPERPLASIA
     Route: 048
     Dates: start: 20041117, end: 20050804
  5. EQUATE [Concomitant]
     Indication: ARTHRALGIA
     Dosage: DOSE: 1-2 TAB
     Route: 048
     Dates: start: 20050425, end: 20050601
  6. ADVIL [Concomitant]
     Indication: PAIN IN EXTREMITY
     Route: 048
     Dates: start: 20050503, end: 20050614
  7. HUMULIN 70/30 [Concomitant]
     Indication: DIABETES MELLITUS
     Route: 058
     Dates: start: 20020318
  8. GLICLAZIDE [Concomitant]
     Indication: DIABETES MELLITUS
     Route: 048
     Dates: start: 20010509
  9. METFORMIN [Concomitant]
     Indication: DIABETES MELLITUS
     Route: 048
     Dates: start: 19990419
  10. IBUPROFEN [Concomitant]
     Indication: OEDEMA PERIPHERAL
     Route: 048
     Dates: start: 20050503, end: 20050614
  11. ASPIRIN [Concomitant]
     Indication: PROPHYLAXIS
     Route: 048
     Dates: start: 20050605
  12. DOCUSATE [Concomitant]
     Indication: CONSTIPATION
     Route: 048
     Dates: start: 20050605, end: 20050707
  13. LORAZEPAM [Concomitant]
     Indication: INSOMNIA
     Route: 048
     Dates: start: 20050605, end: 20050724
  14. BECLOMETHASONE DIPROPIONATE [Concomitant]
     Indication: EAR DISCOMFORT
     Dates: start: 20050114, end: 20051018

REACTIONS (9)
  - CLOSTRIDIUM DIFFICILE COLITIS [None]
  - GAIT DISTURBANCE [None]
  - GLOMERULONEPHRITIS ACUTE [None]
  - HYPOTENSION [None]
  - OEDEMA PERIPHERAL [None]
  - PAIN IN EXTREMITY [None]
  - SLEEP APNOEA SYNDROME [None]
  - SOMNOLENCE [None]
  - VASCULITIS [None]
